FAERS Safety Report 5657765-0 (Version None)
Quarter: 2008Q1

REPORT INFORMATION
  Report Type: 
  Country: None (occurrence: None)
  Receive Date: 20080310
  Receipt Date: 20070808
  Transmission Date: 20080703
  Serious: Yes (Other)
  Sender: FDA-Public Use
  Company Number: US-ASTRAZENECA-2007AC01491

PATIENT
  Age: 54 Year
  Sex: Male

DRUGS (4)
  1. LISINOPRIL [Suspect]
     Indication: HYPERTENSION
  2. AMLODIPINE [Concomitant]
     Indication: HYPERTENSION
  3. SPIRONOLACTONE [Concomitant]
     Indication: FLUID RETENTION
  4. FUROSEMIDE [Concomitant]
     Indication: FLUID RETENTION

REACTIONS (1)
  - HYPOTENSION [None]
